FAERS Safety Report 7392367-X (Version None)
Quarter: 2011Q1

REPORT INFORMATION
  Report Type: 
  Country: None (occurrence: None)
  Receive Date: 20110330
  Receipt Date: 20110330
  Transmission Date: 20110831
  Serious: No
  Sender: FDA-Public Use
  Company Number: None

PATIENT
  Age: 34 Year
  Sex: Female

DRUGS (2)
  1. CRESTOR [Suspect]
     Dates: start: 20080104, end: 20090112
  2. TRINESSA [Suspect]
     Dates: start: 20081130, end: 20090125

REACTIONS (7)
  - ASPARTATE AMINOTRANSFERASE INCREASED [None]
  - ALANINE AMINOTRANSFERASE INCREASED [None]
  - BLOOD ALKALINE PHOSPHATASE INCREASED [None]
  - CHROMATURIA [None]
  - OCULAR ICTERUS [None]
  - PRURITUS [None]
  - LIVER DISORDER [None]
